FAERS Safety Report 14776052 (Version 3)
Quarter: 2018Q2

REPORT INFORMATION
  Report Type: Spontaneous
  Country: JP (occurrence: JP)
  Receive Date: 20180418
  Receipt Date: 20180618
  Transmission Date: 20180711
  Serious: Yes (Other)
  Sender: FDA-Public Use
  Company Number: JP-PFIZER INC-2018156899

PATIENT
  Age: 32 Year
  Sex: Female

DRUGS (2)
  1. CARBOPLATIN. [Suspect]
     Active Substance: CARBOPLATIN
     Indication: NON-SMALL CELL LUNG CANCER
     Dosage: UNK, CYCLIC (120 MG/BODY, ON DAY 1)
     Dates: start: 2017
  2. PACLITAXEL. [Suspect]
     Active Substance: PACLITAXEL
     Indication: LUNG SQUAMOUS CELL CARCINOMA STAGE IV
     Dosage: 200 MG/M2, CYCLIC (ON DAY 1)
     Dates: start: 2017

REACTIONS (6)
  - Toxicity to various agents [Recovered/Resolved]
  - Decreased appetite [Recovered/Resolved]
  - Febrile neutropenia [Recovered/Resolved]
  - Aspartate aminotransferase increased [Recovered/Resolved]
  - Alanine aminotransferase increased [Recovered/Resolved]
  - Nausea [Recovered/Resolved]

NARRATIVE: CASE EVENT DATE: 2017
